FAERS Safety Report 12937244 (Version 2)
Quarter: 2016Q4

REPORT INFORMATION
  Report Type: Spontaneous
  Country: US (occurrence: US)
  Receive Date: 20161114
  Receipt Date: 20161207
  Transmission Date: 20170207
  Serious: Yes (Other)
  Sender: FDA-Public Use
  Company Number: US-PFIZER INC-2016524619

PATIENT
  Sex: Female

DRUGS (1)
  1. PRISTIQ EXTENDED-RELEASE [Suspect]
     Active Substance: DESVENLAFAXINE SUCCINATE
     Dosage: UNK

REACTIONS (13)
  - Drug ineffective [Unknown]
  - Multiple fractures [Unknown]
  - Hyperhidrosis [Unknown]
  - Paraesthesia [Unknown]
  - Neuropathy peripheral [Unknown]
  - Memory impairment [Unknown]
  - Anger [Unknown]
  - Dry mouth [Unknown]
  - Road traffic accident [Unknown]
  - Arthralgia [Unknown]
  - Concussion [Unknown]
  - Hypoaesthesia [Unknown]
  - Sleep phase rhythm disturbance [Unknown]
